FAERS Safety Report 6511792-X (Version None)
Quarter: 2009Q4

REPORT INFORMATION
  Report Type: 
  Country: None (occurrence: None)
  Receive Date: 20091222
  Receipt Date: 20090409
  Transmission Date: 20100525
  Serious: No
  Sender: FDA-Public Use
  Company Number: US-ASTRAZENECA-2009UW08956

PATIENT

DRUGS (1)
  1. CRESTOR [Suspect]
     Route: 048

REACTIONS (4)
  - ALBUMIN URINE [None]
  - BLOOD AMYLASE INCREASED [None]
  - LIPASE INCREASED [None]
  - URINE PROTEIN, QUANTITATIVE [None]
